FAERS Safety Report 15346911 (Version 2)
Quarter: 2018Q3

REPORT INFORMATION
  Report Type: Report from Study
  Country: AR (occurrence: AR)
  Receive Date: 20180904
  Receipt Date: 20180919
  Transmission Date: 20181010
  Serious: Yes (Hospitalization, Other)
  Sender: FDA-Public Use
  Company Number: PHHY2018AR086020

PATIENT
  Sex: Male

DRUGS (2)
  1. SANDOSTATIN LAR DEPOT [Suspect]
     Active Substance: OCTREOTIDE ACETATE
     Indication: ACROMEGALY
     Dosage: 30 MG, QMO
     Route: 065
  2. VITAMINS NOS [Concomitant]
     Active Substance: VITAMINS
     Indication: PRODUCT USED FOR UNKNOWN INDICATION
     Dosage: UNK
     Route: 065

REACTIONS (13)
  - Urinary incontinence [Unknown]
  - Speech disorder [Recovered/Resolved]
  - Deafness [Not Recovered/Not Resolved]
  - Seizure [Unknown]
  - Device failure [Not Recovered/Not Resolved]
  - Malaise [Recovered/Resolved]
  - Syncope [Recovered/Resolved]
  - Optic nerve compression [Unknown]
  - Tooth loss [Unknown]
  - Neoplasm progression [Not Recovered/Not Resolved]
  - Blindness [Not Recovered/Not Resolved]
  - Somnolence [Unknown]
  - Jaw disorder [Unknown]
